FAERS Safety Report 13298518 (Version 1)
Quarter: 2017Q1

REPORT INFORMATION
  Report Type: Spontaneous
  Country: US (occurrence: US)
  Receive Date: 20170306
  Receipt Date: 20170306
  Transmission Date: 20170428
  Serious: Yes (Other)
  Sender: FDA-Public Use
  Company Number: US-NOVOPROD-534063

PATIENT
  Age: 63 Year
  Sex: Male

DRUGS (1)
  1. NOVOLOG [Suspect]
     Active Substance: INSULIN ASPART
     Indication: TYPE 2 DIABETES MELLITUS
     Dosage: UNK
     Route: 058

REACTIONS (5)
  - Chronic kidney disease [Unknown]
  - Cardiac failure congestive [Unknown]
  - Diabetic neuropathy [Unknown]
  - Diabetic retinopathy [Unknown]
  - End stage renal disease [Unknown]
